FAERS Safety Report 15041892 (Version 1)
Quarter: 2018Q2

REPORT INFORMATION
  Report Type: Spontaneous
  Country: US (occurrence: US)
  Receive Date: 20180621
  Receipt Date: 20180621
  Transmission Date: 20180711
  Serious: No
  Sender: FDA-Public Use
  Company Number: US-BAYER-2018-117690

PATIENT
  Age: 61 Year
  Sex: Male
  Weight: 94.97 kg

DRUGS (1)
  1. MIRALAX [Suspect]
     Active Substance: POLYETHYLENE GLYCOL 3350
     Indication: COLONOSCOPY
     Dosage: 8.3OZ MIXED WITH 64OZ OF FLUID DOSE
     Route: 048

REACTIONS (2)
  - Off label use [Unknown]
  - Product prescribing issue [Unknown]
